FAERS Safety Report 6411224-6 (Version None)
Quarter: 2009Q4

REPORT INFORMATION
  Report Type: 
  Country: None (occurrence: None)
  Receive Date: 20091020
  Receipt Date: 20091005
  Transmission Date: 20100525
  Serious: Yes (Hospitalization)
  Sender: FDA-Public Use
  Company Number: 1000009066

PATIENT
  Age: 56 Year
  Sex: Female
  Weight: 69 kg

DRUGS (6)
  1. ESCITALOPRAM [Suspect]
     Dosage: (ONCE)
     Dates: start: 20090815, end: 20090815
  2. ZOLPIDEM [Suspect]
     Dosage: (ONCE)
     Dates: start: 20090815, end: 20090815
  3. HYDROCHLOROTHIAZIDE [Concomitant]
  4. LOSARTAN (100 MILLIGRAM, TABLETS) [Concomitant]
  5. ATORVASTATIN (10 MILLIGRAM, TABLETS) [Concomitant]
  6. ALISKIREN [Concomitant]

REACTIONS (3)
  - LABILE BLOOD PRESSURE [None]
  - MULTIPLE DRUG OVERDOSE INTENTIONAL [None]
  - SUICIDE ATTEMPT [None]
